FAERS Safety Report 6092526-2 (Version None)
Quarter: 2009Q1

REPORT INFORMATION
  Report Type: 
  Country: None (occurrence: None)
  Receive Date: 20090223
  Receipt Date: 20090223
  Transmission Date: 20090719
  Serious: Yes (Other)
  Sender: FDA-Public Use
  Company Number: None

PATIENT
  Age: 64 Year
  Sex: Male
  Weight: 86.1834 kg

DRUGS (1)
  1. CRESTOR [Suspect]
     Dosage: ONE DAILY PO DAILY
     Route: 048
     Dates: start: 20080105, end: 20081002

REACTIONS (3)
  - BLOOD TEST ABNORMAL [None]
  - FATIGUE [None]
  - MUSCULAR WEAKNESS [None]
